FAERS Safety Report 16155464 (Version 2)
Quarter: 2019Q2

REPORT INFORMATION
  Report Type: Spontaneous
  Country: US (occurrence: US)
  Receive Date: 20190404
  Receipt Date: 20190426
  Transmission Date: 20190711
  Serious: No
  Sender: FDA-Public Use
  Company Number: US-009507513-1904USA000908

PATIENT
  Sex: Female
  Weight: 55.33 kg

DRUGS (1)
  1. NEXPLANON [Suspect]
     Active Substance: ETONOGESTREL
     Indication: CONTRACEPTION
     Dosage: DOSE: 1 DOSAGE FORM (68 MILLIGRAM), DAILY (QD)
     Route: 059
     Dates: start: 20180301

REACTIONS (2)
  - Menstruation irregular [Unknown]
  - Vaginal haemorrhage [Not Recovered/Not Resolved]
